FAERS Safety Report 25528009 (Version 1)
Quarter: 2025Q3

REPORT INFORMATION
  Report Type: Report from Study
  Country: US (occurrence: US)
  Receive Date: 20250708
  Receipt Date: 20250708
  Transmission Date: 20251020
  Serious: No
  Sender: SANDOZ
  Company Number: US-SANDOZ-SDZ2024US051391

PATIENT
  Sex: Male

DRUGS (2)
  1. OMNITROPE [Suspect]
     Active Substance: SOMATROPIN
     Indication: Hypopituitarism
     Dosage: 0.3 ML 2 DOSE EVERY N/A N/A(5 MG/ML POWDER AND SOLVENT FOR SOLUTION FOR INJECTION)
     Route: 058
  2. OMNITROPE [Suspect]
     Active Substance: SOMATROPIN
     Indication: Hypopituitarism
     Dosage: 0.3 ML 2 DOSE EVERY N/A N/A(5 MG/ML POWDER AND SOLVENT FOR SOLUTION FOR INJECTION)
     Route: 058

REACTIONS (2)
  - Product storage error [Unknown]
  - Device breakage [Unknown]
